FAERS Safety Report 14829599 (Version 2)
Quarter: 2018Q2

REPORT INFORMATION
  Report Type: Spontaneous
  Country: FR (occurrence: FR)
  Receive Date: 20180430
  Receipt Date: 20180430
  Transmission Date: 20180711
  Serious: Yes (Hospitalization)
  Sender: FDA-Public Use
  Company Number: PHHY2018FR074749

PATIENT
  Age: 40 Year
  Sex: Female

DRUGS (5)
  1. PYOSTACINE [Suspect]
     Active Substance: PRISTINAMYCIN
     Indication: DYSPNOEA
     Dosage: UNK
     Route: 048
  2. VISIPAQUE [Suspect]
     Active Substance: IODIXANOL
     Indication: COMPUTERISED TOMOGRAM ABNORMAL
     Dosage: UNK
     Route: 042
  3. PIVALONE (TIXOCORTOL PIVALATE) [Suspect]
     Active Substance: TIXOCORTOL PIVALATE
     Indication: DYSPNOEA
     Dosage: UNK
     Route: 045
  4. PREDNISOLONE. [Suspect]
     Active Substance: PREDNISOLONE
     Indication: DYSPNOEA
     Dosage: UNK
     Route: 048
  5. HELICIDINE [Suspect]
     Active Substance: ESCARGOT
     Indication: COUGH
     Dosage: UNK
     Route: 048

REACTIONS (1)
  - Rash maculo-papular [Recovered/Resolved]

NARRATIVE: CASE EVENT DATE: 20171020
